FAERS Safety Report 23127774 (Version 6)
Quarter: 2024Q1

REPORT INFORMATION
  Report Type: Spontaneous
  Country: US (occurrence: US)
  Receive Date: 20231031
  Receipt Date: 20240226
  Transmission Date: 20240410
  Serious: Yes (Hospitalization)
  Sender: FDA-Public Use
  Company Number: US-SA-SAC20231027000524

PATIENT
  Age: 66 Year
  Sex: Male

DRUGS (2)
  1. DUPIXENT [Suspect]
     Active Substance: DUPILUMAB
     Indication: Asthma
     Dosage: 400 MG, 1X, START DATE: 26-OCT-2023, STOP DATE: 26-OCT-2023
     Route: 058
  2. DUPIXENT [Suspect]
     Active Substance: DUPILUMAB
     Dosage: 200 MG, QOW, START DATE: ??-???-2023
     Route: 058

REACTIONS (9)
  - Asthma [Not Recovered/Not Resolved]
  - Dyspnoea [Not Recovered/Not Resolved]
  - Impaired quality of life [Unknown]
  - Pharyngitis streptococcal [Unknown]
  - Headache [Unknown]
  - Sinus disorder [Unknown]
  - Dysphonia [Unknown]
  - Hypersensitivity [Unknown]
  - Drug ineffective [Unknown]
